FAERS Safety Report 7364456-7 (Version None)
Quarter: 2011Q1

REPORT INFORMATION
  Report Type: 
  Country: None (occurrence: None)
  Receive Date: 20110321
  Receipt Date: 20110309
  Transmission Date: 20110831
  Serious: Yes (Hospitalization)
  Sender: FDA-Public Use
  Company Number: US-PFIZER INC-2011052135

PATIENT
  Sex: Male
  Weight: 84.354 kg

DRUGS (15)
  1. ZANTAC [Concomitant]
     Indication: PEPTIC ULCER
     Dosage: 150 MG, AS NEEDED
     Route: 048
     Dates: start: 20080101
  2. COREG [Concomitant]
     Indication: HYPERTENSION
     Dosage: 6.25 MG, 2X/DAY
     Route: 048
  3. PF-04856884 [Suspect]
     Indication: RENAL CELL CARCINOMA
     Dosage: 1302 MG, WEEKLY
     Route: 042
     Dates: start: 20110207
  4. XANAX [Concomitant]
     Indication: ANXIETY
     Dosage: 1 MG, 3X/DAY
     Route: 048
     Dates: start: 20080101
  5. NORVASC [Concomitant]
     Indication: HYPERTENSION
     Dosage: 10 MG, 2X/DAY
     Route: 048
     Dates: start: 20100301
  6. LOPERAMIDE HYDROCHLORIDE [Concomitant]
     Indication: DIARRHOEA
     Dosage: 2 TABLETS
     Route: 048
     Dates: start: 20110228, end: 20110228
  7. LOTREL [Concomitant]
     Indication: HYPERTENSION
     Dosage: 1 TABLET, 1X/DAY
     Route: 048
     Dates: start: 20080101
  8. NORMAL SALINE [Concomitant]
     Indication: DIARRHOEA
     Dosage: 1 LITER
     Route: 042
     Dates: start: 20110228, end: 20110228
  9. SUNITINIB MALATE [Suspect]
     Indication: RENAL CELL CARCINOMA
     Dosage: 50 MG, 1X/DAY, 4/2 SCHEDULE
     Route: 048
     Dates: start: 20110207
  10. DILAUDID [Concomitant]
     Indication: ABDOMINAL PAIN LOWER
     Dosage: 2 MG, AS NEEDED
     Route: 042
     Dates: start: 20110217
  11. ZESTRIL [Concomitant]
     Indication: HYPERLIPIDAEMIA
     Dosage: 40 MG, 1X/DAY
     Route: 048
  12. FLONASE [Concomitant]
     Indication: SEASONAL ALLERGY
     Dosage: 2 SPRAYS, AS NEEDED
     Route: 055
  13. ZOCOR [Concomitant]
     Indication: HYPERCHOLESTEROLAEMIA
     Dosage: 20 MG, 1X/DAY
     Route: 048
  14. VICODIN [Concomitant]
     Indication: ABDOMINAL PAIN LOWER
     Dosage: 2 TABLETS, AS NEEDED
     Route: 048
     Dates: start: 20110210
  15. ANZEMET [Concomitant]
     Indication: NAUSEA
     Dosage: 100 MG, 1X/DAY
     Route: 048
     Dates: start: 20110210

REACTIONS (1)
  - COLITIS ISCHAEMIC [None]
